FAERS Safety Report 13385565 (Version 5)
Quarter: 2017Q3

REPORT INFORMATION
  Report Type: Spontaneous
  Country: FR (occurrence: FR)
  Receive Date: 20170330
  Receipt Date: 20170824
  Transmission Date: 20171127
  Serious: Yes (Hospitalization, Other)
  Sender: FDA-Public Use
  Company Number: FR-EXELIXIS-CABO-17008650

PATIENT
  Age: 65 Year
  Sex: Male

DRUGS (13)
  1. XGEVA [Suspect]
     Active Substance: DENOSUMAB
     Indication: METASTASES TO BONE
     Dosage: 120 MG, (1 DF, 1 IN 1 MONTH)
     Route: 058
     Dates: start: 20170202
  2. CALCIDOSE VITAMINE D [Concomitant]
     Active Substance: CALCIUM\CHOLECALCIFEROL
  3. ATENOLOL. [Concomitant]
     Active Substance: ATENOLOL
  4. ATORVASTATIN [Concomitant]
     Active Substance: ATORVASTATIN
  5. CORDARONE [Concomitant]
     Active Substance: AMIODARONE HYDROCHLORIDE
  6. IMOVANE [Concomitant]
     Active Substance: ZOPICLONE
  7. CABOMETYX [Suspect]
     Active Substance: CABOZANTINIB S-MALATE
     Indication: RENAL CANCER METASTATIC
     Dosage: 40 MG, QD
     Route: 048
     Dates: start: 20170215, end: 20170220
  8. TARDYFERON [Concomitant]
     Active Substance: FERROUS SULFATE
  9. CABOMETYX [Suspect]
     Active Substance: CABOZANTINIB S-MALATE
     Dosage: 20 MG, QD
     Route: 048
     Dates: start: 201703
  10. INNOHEP [Concomitant]
     Active Substance: TINZAPARIN SODIUM
  11. LEVOTHYROX [Concomitant]
     Active Substance: LEVOTHYROXINE
  12. EUPANTOL [Concomitant]
     Active Substance: PANTOPRAZOLE SODIUM
  13. XATRAL [Concomitant]
     Active Substance: ALFUZOSIN

REACTIONS (3)
  - Hypothyroidism [Not Recovered/Not Resolved]
  - Hepatocellular injury [Unknown]
  - Hepatic enzyme increased [Recovered/Resolved]

NARRATIVE: CASE EVENT DATE: 201702
